FAERS Safety Report 19882385 (Version 3)
Quarter: 2022Q1

REPORT INFORMATION
  Report Type: Report from Study
  Country: US (occurrence: US)
  Receive Date: 20210924
  Receipt Date: 20220208
  Transmission Date: 20220423
  Serious: Yes (Death, Hospitalization, Disabling)
  Sender: FDA-Public Use
  Company Number: NVSC2021US217518

PATIENT
  Age: 78 Year
  Sex: Male
  Weight: 64.5 kg

DRUGS (3)
  1. ENTRESTO [Suspect]
     Active Substance: SACUBITRIL\VALSARTAN
     Indication: Cardiac failure
     Dosage: 0.5 DF, BID
     Route: 048
     Dates: start: 20210525, end: 20210608
  2. SPIRONOLACTONE [Concomitant]
     Active Substance: SPIRONOLACTONE
     Indication: Product used for unknown indication
     Dosage: 12.5 MG, QD
     Route: 048
     Dates: end: 20210608
  3. BUMETANIDE [Concomitant]
     Active Substance: BUMETANIDE
     Indication: Product used for unknown indication
     Dosage: 0.5 MG, QD
     Route: 048

REACTIONS (10)
  - Multiple organ dysfunction syndrome [Fatal]
  - Nephropathy toxic [Unknown]
  - Acute kidney injury [Unknown]
  - Hyperkalaemia [Unknown]
  - Vomiting [Unknown]
  - Diarrhoea [Unknown]
  - General physical health deterioration [Unknown]
  - Hypovolaemia [Unknown]
  - Dyspnoea [Unknown]
  - Wrong technique in product usage process [Unknown]

NARRATIVE: CASE EVENT DATE: 20210608
